FAERS Safety Report 4701342-2 (Version None)
Quarter: 2005Q2

REPORT INFORMATION
  Report Type: 
  Country: None (occurrence: None)
  Receive Date: 20050628
  Receipt Date: 20050617
  Transmission Date: 20051028
  Serious: Yes (Hospitalization)
  Sender: FDA-Public Use
  Company Number: GB-BRISTOL-MYERS SQUIBB COMPANY-13012026

PATIENT
  Age: 57 Year
  Sex: Female

DRUGS (2)
  1. CETUXIMAB [Suspect]
     Indication: COLORECTAL CANCER
     Dosage: MOST RECENT INFUSION OF CETUXIMAB WAS ADMINISTERED ON 16-JUN-2005.(14TH INFUSION)
     Route: 041
     Dates: start: 20050317
  2. IRINOTECAN [Suspect]
     Indication: COLORECTAL CANCER
     Dosage: MOST RECENT INFUSION WAS ADMINISTERED ON 09-JUN-2005.(7TH INFUSION)
     Route: 042
     Dates: start: 20050317

REACTIONS (1)
  - CHILLS [None]
